FAERS Safety Report 14940286 (Version 1)
Quarter: 2018Q2

REPORT INFORMATION
  Report Type: Report from Study
  Country: US (occurrence: US)
  Receive Date: 20180525
  Receipt Date: 20180525
  Transmission Date: 20180711
  Serious: No
  Sender: FDA-Public Use
  Company Number: US-SA-2017SA143648

PATIENT
  Age: 41 Year
  Sex: Male

DRUGS (1)
  1. ALEMTUZUMAB [Suspect]
     Active Substance: ALEMTUZUMAB
     Indication: MULTIPLE SCLEROSIS RELAPSE
     Dosage: UNK UNK,QD
     Route: 041
     Dates: start: 20170501, end: 20170505

REACTIONS (6)
  - Dysarthria [Recovered/Resolved]
  - Asthenia [Recovered/Resolved]
  - Constipation [Recovered/Resolved]
  - Fatigue [Recovered/Resolved]
  - Haemorrhoidal haemorrhage [Recovered/Resolved]
  - Sacroiliitis [Not Recovered/Not Resolved]

NARRATIVE: CASE EVENT DATE: 20170721
